FAERS Safety Report 9369682 (Version 1)
Quarter: 2013Q2

REPORT INFORMATION
  Report Type: Spontaneous
  Country: US (occurrence: None)
  Receive Date: 20130625
  Receipt Date: 20130625
  Transmission Date: 20140414
  Serious: No
  Sender: FDA-Public Use
  Company Number: None

PATIENT
  Age: 56 Year
  Sex: Male
  Weight: 77.11 kg

DRUGS (4)
  1. METHYLPHENIDATE ER [Suspect]
     Indication: ATTENTION DEFICIT/HYPERACTIVITY DISORDER
     Route: 048
     Dates: start: 20130616, end: 20130616
  2. 40MG SIMVASTATIN [Concomitant]
  3. 25MG HYDROCHLOROTHIAZIDE [Concomitant]
  4. 20MG LISINOPRIL [Concomitant]

REACTIONS (3)
  - Fatigue [None]
  - Abnormal behaviour [None]
  - Product substitution issue [None]
